FAERS Safety Report 7088160-8 (Version None)
Quarter: 2010Q4

REPORT INFORMATION
  Report Type: 
  Country: None (occurrence: None)
  Receive Date: 20101028
  Receipt Date: 20101013
  Transmission Date: 20110411
  Serious: Yes (Hospitalization)
  Sender: FDA-Public Use
  Company Number: AUR-APL-2010-02375

PATIENT
  Age: 70 Year
  Sex: Female
  Weight: 98.1 kg

DRUGS (12)
  1. METFORMIN [Suspect]
     Dosage: (500MG-DAILY-ORAL) (500-BID-ORAL)
     Route: 048
     Dates: start: 20071116, end: 20100724
  2. CELECOXIB [Suspect]
     Indication: OSTEOARTHRITIS
     Dosage: UNK-TID-ORAL
     Route: 048
     Dates: start: 20070621, end: 20091101
  3. PLAVIX [Suspect]
     Indication: CORONARY ARTERY DISEASE
     Dosage: 75MG-DAILY-ORAL
     Route: 048
     Dates: start: 20090109
  4. VALSARTAN [Suspect]
     Indication: HYPERTENSION
     Dosage: 160MG-DAILY-ORAL
     Route: 048
     Dates: start: 20080112, end: 20100725
  5. CRESTOR [Concomitant]
  6. ASPIRIN [Concomitant]
  7. VITAMIN B6 [Concomitant]
  8. ALBUTEROL [Concomitant]
  9. ADVAIR DISKUS 100/50 [Concomitant]
  10. VICODIN [Concomitant]
  11. MAGNESIUM [Concomitant]
  12. METFORMIN [Suspect]
     Dosage: 500MG-BID ORAL
     Route: 048
     Dates: start: 20100807

REACTIONS (11)
  - CORONARY ARTERY DISEASE [None]
  - HYPERLIPIDAEMIA [None]
  - HYPERTENSION [None]
  - MUSCLE SPASMS [None]
  - NEPHROLITHIASIS [None]
  - PNEUMONIA [None]
  - RENAL FAILURE ACUTE [None]
  - SEPSIS [None]
  - THROMBOCYTOPENIA [None]
  - URINARY TRACT INFECTION [None]
  - WHITE BLOOD CELL COUNT INCREASED [None]
